FAERS Safety Report 6914466-6 (Version None)
Quarter: 2010Q3

REPORT INFORMATION
  Report Type: 
  Country: None (occurrence: None)
  Receive Date: 20100809
  Receipt Date: 20100730
  Transmission Date: 20110219
  Serious: Yes (Death, Other)
  Sender: FDA-Public Use
  Company Number: US-PFIZER INC-2010079652

PATIENT
  Age: 38 Year
  Sex: Male
  Weight: 114.29 kg

DRUGS (4)
  1. ALPRAZOLAM [Suspect]
     Dosage: UNK
  2. OXYCODONE [Interacting]
     Dosage: UNK
  3. TRAMADOL HCL [Interacting]
     Dosage: UNK
  4. CARISOPRODOL [Interacting]
     Dosage: UNK

REACTIONS (7)
  - CHOLECYSTECTOMY [None]
  - DRUG INTERACTION [None]
  - DRUG TOXICITY [None]
  - GASTRECTOMY [None]
  - GASTRIC BYPASS [None]
  - HYPERTENSIVE HEART DISEASE [None]
  - VENTRICULAR HYPERTROPHY [None]
